FAERS Safety Report 15119817 (Version 36)
Quarter: 2021Q3

REPORT INFORMATION
  Report Type: Report from Study
  Country: CA (occurrence: CA)
  Receive Date: 20180709
  Receipt Date: 20210828
  Transmission Date: 20211014
  Serious: Yes (Other)
  Sender: FDA-Public Use
  Company Number: PHHY2017CA061325

PATIENT
  Age: 11 Year
  Sex: Male

DRUGS (42)
  1. ILARIS [Suspect]
     Active Substance: CANAKINUMAB
     Dosage: UNK
     Route: 058
     Dates: start: 20170714
  2. ILARIS [Suspect]
     Active Substance: CANAKINUMAB
     Dosage: UNK
     Route: 058
     Dates: start: 20171129
  3. ILARIS [Suspect]
     Active Substance: CANAKINUMAB
     Dosage: 75 OT, EVERY 4 WEEKS
     Route: 058
     Dates: start: 20190212
  4. ILARIS [Suspect]
     Active Substance: CANAKINUMAB
     Dosage: 75 MG, EVERY 4 WEEKS
     Route: 058
     Dates: start: 20190409
  5. ILARIS [Suspect]
     Active Substance: CANAKINUMAB
     Dosage: 75 MG, Q4W
     Route: 058
     Dates: start: 20190826
  6. ILARIS [Suspect]
     Active Substance: CANAKINUMAB
     Dosage: 75 MG, Q4W
     Route: 058
     Dates: start: 20200310
  7. ILARIS [Suspect]
     Active Substance: CANAKINUMAB
     Dosage: UNK
     Route: 058
     Dates: start: 20170519
  8. ILARIS [Suspect]
     Active Substance: CANAKINUMAB
     Dosage: UNK
     Route: 058
     Dates: start: 20170615
  9. ILARIS [Suspect]
     Active Substance: CANAKINUMAB
     Dosage: UNK
     Route: 058
     Dates: start: 20170810
  10. ILARIS [Suspect]
     Active Substance: CANAKINUMAB
     Dosage: UNK
     Route: 058
     Dates: start: 20171005
  11. ILARIS [Suspect]
     Active Substance: CANAKINUMAB
     Dosage: UNK
     Route: 058
     Dates: start: 20171101
  12. ILARIS [Suspect]
     Active Substance: CANAKINUMAB
     Dosage: 75 OT, EVERY 4 WEEKS
     Route: 058
     Dates: start: 20180423
  13. ILARIS [Suspect]
     Active Substance: CANAKINUMAB
     Dosage: 75 OT, QW
     Route: 058
     Dates: start: 20180626
  14. ILARIS [Suspect]
     Active Substance: CANAKINUMAB
     Dosage: 75 MG, Q4W
     Route: 058
     Dates: start: 20190531
  15. ILARIS [Suspect]
     Active Substance: CANAKINUMAB
     Dosage: 75 MG, Q4W
     Route: 058
     Dates: start: 20190628
  16. ILARIS [Suspect]
     Active Substance: CANAKINUMAB
     Dosage: UNK
     Route: 058
     Dates: start: 20190923
  17. ILARIS [Suspect]
     Active Substance: CANAKINUMAB
     Dosage: 75 MG, Q4W
     Route: 058
     Dates: start: 20170422
  18. ILARIS [Suspect]
     Active Substance: CANAKINUMAB
     Dosage: 75 OT, EVERY 4 WEEKS
     Route: 058
     Dates: start: 20180228
  19. ILARIS [Suspect]
     Active Substance: CANAKINUMAB
     Dosage: 75 OT, EVERY 4 WEEKS
     Route: 058
     Dates: start: 20180324
  20. ILARIS [Suspect]
     Active Substance: CANAKINUMAB
     Dosage: 75 MG, Q4W
     Route: 058
     Dates: start: 20190506
  21. ILARIS [Suspect]
     Active Substance: CANAKINUMAB
     Dosage: 75 MG, Q4W
     Route: 058
     Dates: start: 20200407
  22. ILARIS [Suspect]
     Active Substance: CANAKINUMAB
     Dosage: UNK
     Route: 058
     Dates: start: 20170907
  23. ILARIS [Suspect]
     Active Substance: CANAKINUMAB
     Dosage: UNK UNK, Q4W
     Route: 058
     Dates: start: 20180820
  24. ILARIS [Suspect]
     Active Substance: CANAKINUMAB
     Dosage: 75 MG, Q4W
     Route: 058
     Dates: start: 20191021
  25. ILARIS [Suspect]
     Active Substance: CANAKINUMAB
     Dosage: 100 MG, Q4W
     Route: 058
     Dates: start: 20200629
  26. ILARIS [Suspect]
     Active Substance: CANAKINUMAB
     Dosage: 100 MG, Q4W
     Route: 058
     Dates: start: 20200727
  27. ILARIS [Suspect]
     Active Substance: CANAKINUMAB
     Dosage: 75 OT, QW
     Route: 058
     Dates: start: 20180525
  28. ILARIS [Suspect]
     Active Substance: CANAKINUMAB
     Dosage: 75 OT, QW
     Route: 058
     Dates: start: 20180723
  29. ILARIS [Suspect]
     Active Substance: CANAKINUMAB
     Dosage: 75 OT, EVERY 4 WEEKS
     Route: 058
     Dates: start: 20190312
  30. ILARIS [Suspect]
     Active Substance: CANAKINUMAB
     Dosage: 75 MG, Q4W
     Route: 058
     Dates: start: 20191216
  31. ILARIS [Suspect]
     Active Substance: CANAKINUMAB
     Indication: TUMOUR NECROSIS FACTOR RECEPTOR-ASSOCIATED PERIODIC SYNDROME
     Dosage: 100 MG, Q4W
     Route: 058
     Dates: start: 20150126
  32. ILARIS [Suspect]
     Active Substance: CANAKINUMAB
     Dosage: 75 OT, EVERY 4 WEEKS
     Route: 058
     Dates: start: 20180131
  33. ILARIS [Suspect]
     Active Substance: CANAKINUMAB
     Dosage: 75 OT, EVERY 4 WEEKS
     Route: 058
     Dates: start: 20180918
  34. ILARIS [Suspect]
     Active Substance: CANAKINUMAB
     Dosage: 75 MG, Q4W
     Route: 058
     Dates: start: 20200113
  35. ILARIS [Suspect]
     Active Substance: CANAKINUMAB
     Dosage: 75 MG, Q4W
     Route: 058
     Dates: start: 20200210
  36. ILARIS [Suspect]
     Active Substance: CANAKINUMAB
     Dosage: 75 MG, EVERY 4 WEEKS
     Route: 058
     Dates: start: 20171230
  37. ILARIS [Suspect]
     Active Substance: CANAKINUMAB
     Dosage: 75 OT, EVERY 4 WEEKS
     Route: 058
     Dates: start: 20181211
  38. ILARIS [Suspect]
     Active Substance: CANAKINUMAB
     Dosage: 100 MG, Q4W
     Route: 058
     Dates: start: 20200824
  39. ILARIS [Suspect]
     Active Substance: CANAKINUMAB
     Dosage: 75 OT, EVERY 4 WEEKS
     Route: 058
     Dates: start: 20181015
  40. ILARIS [Suspect]
     Active Substance: CANAKINUMAB
     Dosage: 75 OT, EVERY 4 WEEKS
     Route: 058
     Dates: start: 20181113
  41. ILARIS [Suspect]
     Active Substance: CANAKINUMAB
     Dosage: 75 MG, Q4W
     Route: 058
     Dates: start: 20190729
  42. ILARIS [Suspect]
     Active Substance: CANAKINUMAB
     Dosage: 75 MG, Q4W
     Route: 058
     Dates: start: 20200505

REACTIONS (7)
  - Body temperature decreased [Unknown]
  - Haematochezia [Unknown]
  - Heart rate decreased [Unknown]
  - Adenoidal hypertrophy [Unknown]
  - Blood pressure decreased [Unknown]
  - Localised infection [Recovered/Resolved]
  - Headache [Unknown]

NARRATIVE: CASE EVENT DATE: 20170422
